FAERS Safety Report 5573781-1 (Version None)
Quarter: 2007Q4

REPORT INFORMATION
  Report Type: 
  Country: None (occurrence: None)
  Receive Date: 20071226
  Receipt Date: 20071217
  Transmission Date: 20080405
  Serious: Yes (Hospitalization, Other)
  Sender: FDA-Public Use
  Company Number: US-ASTRAZENECA-2007UW09715

PATIENT
  Age: 14646 Day
  Sex: Male

DRUGS (1)
  1. SEROQUEL [Suspect]
     Indication: BIPOLAR DISORDER
     Dosage: 50-1200 MG
     Route: 048
     Dates: start: 20030101, end: 20050801

REACTIONS (5)
  - DIABETIC KETOACIDOSIS [None]
  - HYPERGLYCAEMIA [None]
  - NEUROPATHY [None]
  - PANCREATITIS ACUTE [None]
  - TYPE 1 DIABETES MELLITUS [None]
